FAERS Safety Report 9581019 (Version 1)
Quarter: 2013Q4

REPORT INFORMATION
  Report Type: Spontaneous
  Country: US (occurrence: None)
  Receive Date: 20131001
  Receipt Date: 20131001
  Transmission Date: 20140711
  Serious: No
  Sender: FDA-Public Use
  Company Number: None

PATIENT
  Age: 76 Year
  Sex: Female
  Weight: 79.38 kg

DRUGS (1)
  1. CIPROFLOXACIN HCL [Suspect]
     Indication: URINARY TRACT INFECTION
     Dosage: 6 PILLD TWICES DAILY FOR 3 DAYS
     Route: 048
     Dates: start: 20130611, end: 20130613

REACTIONS (5)
  - Pain in extremity [None]
  - Local swelling [None]
  - Tendon pain [None]
  - Swelling [None]
  - Movement disorder [None]
